FAERS Safety Report 16894530 (Version 3)
Quarter: 2019Q4

REPORT INFORMATION
  Report Type: Report from Study
  Country: NL (occurrence: NL)
  Receive Date: 20191008
  Receipt Date: 20191018
  Transmission Date: 20200122
  Serious: Yes (Death, Hospitalization)
  Sender: FDA-Public Use
  Company Number: NL-PFIZER INC-2019428567

PATIENT

DRUGS (24)
  1. CIPROFLOXACINE [Concomitant]
     Active Substance: CIPROFLOXACIN
     Indication: BACTERIAL INFECTION
     Dosage: 500 MG (FREQUENCY: 1DD)
     Route: 048
     Dates: start: 20190830
  2. MYCOFENOLAAT MOFETIL [Concomitant]
     Active Substance: MYCOPHENOLATE MOFETIL
     Indication: APLASTIC ANAEMIA
     Dosage: 1000 MG, 3X/DAY
     Route: 048
     Dates: start: 20190819
  3. SALBUTAMOL [Concomitant]
     Active Substance: ALBUTEROL
     Indication: ASTHMA
     Dosage: 200 MCG/DOSIS (FREQUENCY: 2 DD, IF NEEDED)
     Route: 055
  4. OXYCODON [Concomitant]
     Active Substance: OXYCODONE
     Indication: PAIN
     Dosage: 5 MG, AS NEEDED (2-6 PER DAY, IF NEEDED)
     Route: 048
     Dates: start: 20190911
  5. VORICONAZOLE. [Concomitant]
     Active Substance: VORICONAZOLE
     Indication: ASPERGILLUS INFECTION
     Dosage: 451,8 MG SINGLE (ONCE)
     Route: 042
     Dates: start: 20190914, end: 20190914
  6. BETAMETHASON/SALICYLZUUR [Concomitant]
     Indication: PSORIASIS
     Dosage: 0.5/30 MG/G (FREQUENCY: 1DD)
     Route: 003
  7. LITHIUM CARBONATE. [Concomitant]
     Active Substance: LITHIUM CARBONATE
     Indication: DEPRESSION
     Dosage: 200 MG (FREQUENCY:1 DD2)
     Route: 048
  8. CYCLOSPORINE. [Suspect]
     Active Substance: CYCLOSPORINE
     Indication: APLASTIC ANAEMIA
     Dosage: 100 MG, TWICE A DAY
     Dates: start: 20181224, end: 20190401
  9. CALCIUMCARBONAAT/COLECALCIFEROL [Concomitant]
     Indication: OSTEOPOROSIS
     Dosage: 500/800 (FREQUENCY: 1DD)
     Route: 048
     Dates: start: 20190704
  10. FILGRASTIM [Concomitant]
     Active Substance: FILGRASTIM
     Indication: NEUTROPENIA
     Dosage: 30 MILJ. E = 0.5 ML INJECTION
     Route: 058
     Dates: start: 20190819
  11. TEMAZEPAM. [Concomitant]
     Active Substance: TEMAZEPAM
     Indication: INSOMNIA
     Dosage: 10 MG (FREQUENCY: 1 DD)
     Route: 048
  12. VALACICLOVIR [Concomitant]
     Active Substance: VALACYCLOVIR HYDROCHLORIDE
     Indication: PROPHYLAXIS
     Dosage: 500 MG (FREQUENCY: 1DD)
     Route: 048
     Dates: start: 20190826
  13. VORICONAZOLE. [Concomitant]
     Active Substance: VORICONAZOLE
     Indication: ASPERGILLUS INFECTION
     Dosage: 200 - 400 MG (FREQUENCY: 2DD)
     Route: 048
     Dates: start: 20190913, end: 20190920
  14. CETOMACROGOL [Concomitant]
     Active Substance: COSMETICS
     Indication: DRY SKIN
     Dosage: 1 G, AS NEEDED (FREQUENCY: 1DD IF NEEDED)
     Route: 003
  15. ALEMTUZUMAB [Concomitant]
     Active Substance: ALEMTUZUMAB
     Indication: APLASTIC ANAEMIA
     Dosage: 3-30 MG (FREQUENCY: 1DD)
     Route: 042
     Dates: start: 20190920, end: 20190924
  16. DARBEPOETIN ALPHA [Concomitant]
     Indication: APLASTIC ANAEMIA
     Dosage: 300 UG, MONTHLY (ONCE EVERY FOUR WEEKS)
     Route: 051
     Dates: start: 20190606
  17. ANIDULAFUNGINE [Concomitant]
     Indication: ASPERGILLUS INFECTION
     Dosage: 200 MG (FREQUENCY: 1DD)
     Route: 042
     Dates: start: 20190913
  18. CICLESONIDE [Concomitant]
     Active Substance: CICLESONIDE
     Indication: ASTHMA
     Dosage: 160 UG (FREQUENCY: 2DD)
     Route: 055
  19. AMBISOME [Concomitant]
     Active Substance: AMPHOTERICIN B
     Indication: ASPERGILLUS INFECTION
     Dosage: 224 - 250 MG (FREQUENCY: 1DD)
     Route: 042
     Dates: start: 20190920
  20. CYCLOSPORINE. [Suspect]
     Active Substance: CYCLOSPORINE
     Dosage: 150 MG, TWICE A DAY
     Dates: start: 20190401, end: 20190606
  21. CEFTRIAXON [Concomitant]
     Active Substance: CEFTRIAXONE
     Indication: PNEUMONIA
     Dosage: 2000 MG (FREQUENCY: 1 DD)
     Route: 042
     Dates: start: 20190910
  22. ATGAM [Suspect]
     Active Substance: EQUINE THYMOCYTE IMMUNE GLOBULIN
     Indication: APLASTIC ANAEMIA
     Dosage: 40 MG/KG, ONCE A DAY
     Dates: start: 20181218, end: 20181221
  23. OMPEPRAZOL [Concomitant]
     Indication: GASTRITIS
     Dosage: 40 MG (FREQUENCY: 1DD)
     Route: 048
     Dates: start: 20190225
  24. CLEMASTINE [Concomitant]
     Active Substance: CLEMASTINE
     Indication: APLASTIC ANAEMIA
     Dosage: 3 MG (FREQUENCY: 1DD)
     Route: 042
     Dates: start: 20190920, end: 20190924

REACTIONS (2)
  - Disease recurrence [Fatal]
  - Neutropenic sepsis [Fatal]

NARRATIVE: CASE EVENT DATE: 20190926
